FAERS Safety Report 12712270 (Version 9)
Quarter: 2019Q2

REPORT INFORMATION
  Report Type: Report from Study
  Country: JP (occurrence: JP)
  Receive Date: 20160902
  Receipt Date: 20190527
  Transmission Date: 20190711
  Serious: Yes (Death, Other)
  Sender: FDA-Public Use
  Company Number: PHJP2016JP020748

PATIENT
  Age: 56 Year
  Sex: Female

DRUGS (6)
  1. TAFINLAR [Suspect]
     Active Substance: DABRAFENIB MESYLATE
     Indication: MALIGNANT MELANOMA STAGE II
     Dosage: 150 MG, QD
     Route: 048
     Dates: start: 20160622, end: 20160824
  2. DECADRON [Concomitant]
     Active Substance: DEXAMETHASONE
     Indication: MALIGNANT MELANOMA STAGE II
     Dosage: 2 MG, UNK
     Route: 048
     Dates: start: 20161019
  3. MEKINIST [Suspect]
     Active Substance: TRAMETINIB DIMETHYL SULFOXIDE
     Dosage: 1 MG, QD
     Route: 048
     Dates: start: 20170126, end: 20170208
  4. FAMOTIDINE. [Concomitant]
     Active Substance: FAMOTIDINE
     Indication: MALIGNANT MELANOMA STAGE II
     Dosage: 20 MG, UNK
     Route: 048
     Dates: start: 20161019
  5. MEKINIST [Suspect]
     Active Substance: TRAMETINIB DIMETHYL SULFOXIDE
     Indication: MALIGNANT MELANOMA STAGE II
     Dosage: 1 MG, QD
     Route: 048
     Dates: start: 20160622, end: 20160824
  6. MEKINIST [Suspect]
     Active Substance: TRAMETINIB DIMETHYL SULFOXIDE
     Dosage: 2 MG, QD
     Route: 048
     Dates: start: 20170209

REACTIONS (12)
  - Vitreous floaters [Recovering/Resolving]
  - Malignant neoplasm progression [Fatal]
  - Macular degeneration [Recovered/Resolved]
  - Serous retinal detachment [Recovering/Resolving]
  - Pyrexia [Recovered/Resolved]
  - Pyrexia [Unknown]
  - Uveitis [Recovering/Resolving]
  - Overdose [Unknown]
  - Malignant melanoma stage II [Fatal]
  - Chorioretinal folds [Recovering/Resolving]
  - Infection [Unknown]
  - Off label use [Unknown]

NARRATIVE: CASE EVENT DATE: 20160719
